FAERS Safety Report 8416022-X (Version None)
Quarter: 2012Q2

REPORT INFORMATION
  Report Type: 
  Country: None (occurrence: None)
  Receive Date: 20120606
  Receipt Date: 20120529
  Transmission Date: 20120825
  Serious: Yes (Hospitalization)
  Sender: FDA-Public Use
  Company Number: US-BAYER-200925856NA

PATIENT
  Age: 44 Year
  Sex: Female
  Weight: 64 kg

DRUGS (5)
  1. GEMZAR [Concomitant]
     Dosage: 800 MG (DAILY DOSE), , INTRAVENOUS
     Route: 042
     Dates: start: 20090707, end: 20090707
  2. ABRAXANE [Concomitant]
     Route: 042
     Dates: start: 20090714, end: 20090714
  3. PLACEBO [Suspect]
     Indication: BREAST CANCER METASTATIC
     Dosage: 400 MG, BID
     Route: 048
     Dates: start: 20090609, end: 20090618
  4. GEMZAR [Suspect]
     Indication: BREAST CANCER METASTATIC
     Dosage: DAY 1 AND 8 OF 21 DAY CYCLE
     Route: 042
     Dates: start: 20090609, end: 20090616
  5. GEMZAR [Suspect]
     Dosage: DAY 1 AND 8 OF 21 DAY CYCLE
     Route: 042
     Dates: start: 20090616, end: 20090616

REACTIONS (3)
  - BREAST CELLULITIS [None]
  - ASCITES [None]
  - NEUTROPENIA [None]
